FAERS Safety Report 17888204 (Version 1)
Quarter: 2020Q2

REPORT INFORMATION
  Report Type: Spontaneous
  Country: US (occurrence: US)
  Receive Date: 20200611
  Receipt Date: 20200611
  Transmission Date: 20200714
  Serious: Yes (Hospitalization)
  Sender: FDA-Public Use
  Company Number: None

PATIENT
  Age: 39 Year
  Sex: Female

DRUGS (9)
  1. SODIUM CHLOR NEB 7% [Concomitant]
  2. ALBUTEROL NEB [Concomitant]
     Active Substance: ALBUTEROL
  3. AMOX/K CLAV [Concomitant]
     Active Substance: AMOXICILLIN\CLAVULANATE POTASSIUM
  4. PULMOZYME [Suspect]
     Active Substance: DORNASE ALFA
     Indication: CYSTIC FIBROSIS
     Dosage: ?          OTHER DOSE:1 VIAL;OTHER ROUTE:INH?
  5. AZITHROMYCIN ANHYDROUS. [Concomitant]
     Active Substance: AZITHROMYCIN ANHYDROUS
  6. LEVOFLOXACIN. [Concomitant]
     Active Substance: LEVOFLOXACIN
  7. SE-NATAL [Concomitant]
     Active Substance: .ALPHA.-TOCOPHEROL ACETATE, DL-\CALCIUM CARBONATE\CUPRIC OXIDE\CYANOCOBALAMIN\DOCUSATE SODIUM\ERGOCALCIFEROL\FERROUS FUMARATE\FOLIC ACID\NIACIN\NIACINAMIDE ASCORBATE\POTASSIUM IODIDE\PYRIDOXINE HYDROCHLORIDE\RIBOFLAVIN\THIAMINE MONONITRATE\VITAMIN A ACETATE\ZINC OXIDE
  8. PRENATAL [Concomitant]
     Active Substance: VITAMINS
  9. AMOXICILLIN. [Concomitant]
     Active Substance: AMOXICILLIN

REACTIONS (2)
  - Cystic fibrosis [None]
  - Condition aggravated [None]

NARRATIVE: CASE EVENT DATE: 20200603
